FAERS Safety Report 4266969-3 (Version None)
Quarter: 2004Q1

REPORT INFORMATION
  Report Type: 
  Country: None (occurrence: None)
  Receive Date: 20040107
  Receipt Date: 20031223
  Transmission Date: 20041129
  Serious: Yes (Other)
  Sender: FDA-Public Use
  Company Number: DE-SHR-03-015509

PATIENT
  Sex: Female

DRUGS (1)
  1. YASMIN [Suspect]
     Dosage: ORAL
     Route: 048
     Dates: start: 20010101

REACTIONS (8)
  - ASTHMA [None]
  - COUGH [None]
  - FATIGUE [None]
  - HOARSENESS [None]
  - IMMUNODEFICIENCY [None]
  - INFLUENZA [None]
  - RHINITIS [None]
  - TONSILLITIS [None]
